FAERS Safety Report 24410438 (Version 1)
Quarter: 2024Q4

REPORT INFORMATION
  Report Type: Spontaneous
  Country: ES (occurrence: ES)
  Receive Date: 20241008
  Receipt Date: 20241008
  Transmission Date: 20250115
  Serious: Yes (Other)
  Sender: BRISTOL MYERS SQUIBB
  Company Number: ES-STADA-01298962

PATIENT
  Age: 48 Year
  Sex: Male

DRUGS (3)
  1. DASATINIB [Suspect]
     Active Substance: DASATINIB
     Indication: Chronic myeloid leukaemia
     Dosage: FOR ONE YEAR
  2. ICLUSIG [Concomitant]
     Active Substance: PONATINIB\PONATINIB HYDROCHLORIDE
     Indication: Chronic myeloid leukaemia
     Dosage: 15 MILLIGRAM, QD
  3. BOSUTINIB [Concomitant]
     Active Substance: BOSUTINIB
     Indication: Chronic myeloid leukaemia

REACTIONS (1)
  - Encephalopathy [Unknown]
